FAERS Safety Report 5765370-0 (Version None)
Quarter: 2008Q2

REPORT INFORMATION
  Report Type: 
  Country: None (occurrence: None)
  Receive Date: 20080609
  Receipt Date: 20080609
  Transmission Date: 20081010
  Serious: No
  Sender: FDA-Public Use
  Company Number: None

PATIENT
  Age: 69 Year
  Sex: Female
  Weight: 54.4316 kg

DRUGS (1)
  1. AVELOX [Suspect]
     Indication: NASOPHARYNGITIS
     Dosage: 1 PILL DAILY
     Dates: start: 20080603, end: 20080606

REACTIONS (2)
  - DIZZINESS [None]
  - DYSPNOEA [None]
